FAERS Safety Report 7949578-1 (Version None)
Quarter: 2011Q4

REPORT INFORMATION
  Report Type: 
  Country: None (occurrence: None)
  Receive Date: 20111130
  Receipt Date: 20111114
  Transmission Date: 20120403
  Serious: Yes (Hospitalization)
  Sender: FDA-Public Use
  Company Number: US-BAYER-2011-036224

PATIENT
  Age: 14 Year
  Sex: Female
  Weight: 73.469 kg

DRUGS (4)
  1. YASMIN [Suspect]
     Indication: MENSTRUATION IRREGULAR
  2. YASMIN [Suspect]
     Indication: MENORRHAGIA
  3. BACTRIM [Concomitant]
  4. YASMIN [Suspect]
     Indication: ACNE
     Dosage: UNK
     Dates: start: 20040102, end: 20080101

REACTIONS (14)
  - NAUSEA [None]
  - VOMITING [None]
  - GASTRITIS [None]
  - HIATUS HERNIA [None]
  - ANXIETY [None]
  - CHEST PAIN [None]
  - FEAR [None]
  - GENERAL PHYSICAL HEALTH DETERIORATION [None]
  - INJURY [None]
  - BILIARY DYSKINESIA [None]
  - ABDOMINAL PAIN UPPER [None]
  - CHOLECYSTITIS [None]
  - INCISION SITE PAIN [None]
  - EMOTIONAL DISTRESS [None]
